FAERS Safety Report 14613843 (Version 2)
Quarter: 2019Q3

REPORT INFORMATION
  Report Type: Spontaneous
  Country: TW (occurrence: TW)
  Receive Date: 20180308
  Receipt Date: 20190903
  Transmission Date: 20191004
  Serious: Yes (Death, Other)
  Sender: FDA-Public Use
  Company Number: TW-PFIZER INC-2018068766

PATIENT
  Age: 96 Year
  Sex: Male

DRUGS (4)
  1. CEFMETAZOLE [Concomitant]
     Active Substance: CEFMETAZOLE
     Indication: EVIDENCE BASED TREATMENT
     Dosage: 2000 MG, 3X/DAY
     Route: 042
  2. AMIKACIN. [Concomitant]
     Active Substance: AMIKACIN
     Indication: EVIDENCE BASED TREATMENT
     Dosage: 500 MG, DAILY
     Route: 042
  3. ANIDULAFUNGIN [Suspect]
     Active Substance: ANIDULAFUNGIN
     Indication: SYSTEMIC CANDIDA
     Dosage: 200 MG, DAILY  (LOADING DOSE)
     Route: 042
  4. ANIDULAFUNGIN [Suspect]
     Active Substance: ANIDULAFUNGIN
     Dosage: 100 MG, DAILY (MAINTENANCE DOSE)
     Route: 042

REACTIONS (1)
  - Fungaemia [Fatal]
